FAERS Safety Report 12998495 (Version 2)
Quarter: 2016Q4

REPORT INFORMATION
  Report Type: Report from Study
  Country: US (occurrence: US)
  Receive Date: 20161205
  Receipt Date: 20161208
  Transmission Date: 20170207
  Serious: Yes (Other)
  Sender: FDA-Public Use
  Company Number: US-GILEAD-2016-0247001

PATIENT
  Age: 68 Year
  Sex: Male
  Weight: 115 kg

DRUGS (8)
  1. RIOCIGUAT [Concomitant]
     Active Substance: RIOCIGUAT
  2. AMBRISENTAN [Suspect]
     Active Substance: AMBRISENTAN
     Indication: PULMONARY HYPERTENSION
     Dosage: 10 MG, QD
     Route: 065
  3. COUMADIN [Concomitant]
     Active Substance: WARFARIN SODIUM
  4. AMBRISENTAN [Suspect]
     Active Substance: AMBRISENTAN
     Indication: PULMONARY HYPERTENSION
  5. TYVASO [Concomitant]
     Active Substance: TREPROSTINIL
  6. ASA [Concomitant]
     Active Substance: ASPIRIN
  7. TREPROSTINIL [Concomitant]
     Active Substance: TREPROSTINIL
  8. ADEMPAS [Concomitant]
     Active Substance: RIOCIGUAT

REACTIONS (1)
  - Abscess oral [Unknown]
